FAERS Safety Report 6584094-3 (Version None)
Quarter: 2010Q1

REPORT INFORMATION
  Report Type: 
  Country: None (occurrence: None)
  Receive Date: 20100216
  Receipt Date: 20091230
  Transmission Date: 20100710
  Serious: No
  Sender: FDA-Public Use
  Company Number: US-ABBOTT-09P-163-0617095-00

PATIENT
  Sex: Female
  Weight: 67.192 kg

DRUGS (14)
  1. SIMCOR [Suspect]
     Indication: DRUG USE FOR UNKNOWN INDICATION
     Dosage: 500/20MG AT BEDTIME
     Route: 048
  2. SIMCOR [Suspect]
  3. WELLBUTRIN [Concomitant]
     Indication: DRUG USE FOR UNKNOWN INDICATION
     Route: 048
  4. XANAX [Concomitant]
     Indication: DRUG USE FOR UNKNOWN INDICATION
     Route: 048
  5. ATICAND [Concomitant]
     Indication: DRUG USE FOR UNKNOWN INDICATION
     Route: 048
  6. ESTROGEN [Concomitant]
     Indication: DRUG USE FOR UNKNOWN INDICATION
     Dosage: 1/2 PILL
  7. MG [Concomitant]
     Indication: DRUG USE FOR UNKNOWN INDICATION
     Route: 048
  8. ASPIRIN [Concomitant]
     Indication: DRUG USE FOR UNKNOWN INDICATION
     Route: 048
  9. VITAMIN D [Concomitant]
     Indication: DRUG USE FOR UNKNOWN INDICATION
     Route: 048
  10. M.V.I. [Concomitant]
     Indication: DRUG USE FOR UNKNOWN INDICATION
  11. VITAMIN C [Concomitant]
     Indication: DRUG USE FOR UNKNOWN INDICATION
  12. FOLTABS [Concomitant]
     Indication: DRUG USE FOR UNKNOWN INDICATION
  13. IBUPROFEN [Concomitant]
     Indication: ARTHRALGIA
     Route: 048
  14. PIROXICAM [Concomitant]
     Indication: ARTHRALGIA
     Route: 048

REACTIONS (3)
  - FLUSHING [None]
  - HEADACHE [None]
  - SINUSITIS [None]
